FAERS Safety Report 7710909-9 (Version None)
Quarter: 2011Q3

REPORT INFORMATION
  Report Type: 
  Country: None (occurrence: None)
  Receive Date: 20110825
  Receipt Date: 20110817
  Transmission Date: 20111222
  Serious: Yes (Other)
  Sender: FDA-Public Use
  Company Number: US-ASTRAZENECA-2011SE49387

PATIENT
  Age: 2 Year
  Sex: Male

DRUGS (1)
  1. NEXIUM [Suspect]
     Dosage: 10 NEXIUM TABLETS
     Route: 048

REACTIONS (1)
  - ACCIDENTAL DRUG INTAKE BY CHILD [None]
